FAERS Safety Report 8960384 (Version 2)
Quarter: 2012Q4

REPORT INFORMATION
  Report Type: 
  Country: RO (occurrence: RO)
  Receive Date: 20121211
  Receipt Date: 20121220
  Transmission Date: 20130627
  Serious: Yes (Other)
  Sender: FDA-Public Use
  Company Number: RO-UCBSA-072660

PATIENT
  Age: 23 Year
  Sex: Male

DRUGS (4)
  1. VIMPAT [Suspect]
     Indication: PARTIAL SEIZURES
     Dosage: DAILY DOSE: 300 MG
     Route: 048
     Dates: start: 201203, end: 20121016
  2. LEVETIRACETAM [Concomitant]
     Dosage: 2 YEARS
  3. FINLEPSINE [Concomitant]
     Dosage: DAILY DOSE: 400 MG,2 YEARS
     Route: 048
  4. TOPIRAMATE [Concomitant]
     Dosage: 2X150 MG,2 YEARS

REACTIONS (3)
  - Visual acuity reduced [Unknown]
  - Drug ineffective [Recovered/Resolved]
  - Treatment noncompliance [Unknown]
